FAERS Safety Report 8605392-5 (Version None)
Quarter: 2012Q3

REPORT INFORMATION
  Report Type: 
  Country: None (occurrence: None)
  Receive Date: 20120807
  Receipt Date: 20120725
  Transmission Date: 20120928
  Serious: Yes (Life-Threatening, Hospitalization)
  Sender: FDA-Public Use
  Company Number: MC201200477

PATIENT
  Sex: Male

DRUGS (6)
  1. ANGIOMAX [Suspect]
     Indication: CORONARY ANGIOPLASTY
     Dosage: 0.75 MG/KG, BOLUS, INTRAVENOUS, 1.75 MG/KG/HR, INTRAVENOUS, BOLUS, INTRAVENOUS
     Route: 040
     Dates: start: 20120725
  2. ANGIOMAX [Suspect]
     Indication: CORONARY ANGIOPLASTY
     Dosage: 0.75 MG/KG, BOLUS, INTRAVENOUS, 1.75 MG/KG/HR, INTRAVENOUS, BOLUS, INTRAVENOUS
     Route: 040
     Dates: start: 20120725
  3. FENTANYL [Concomitant]
  4. VERSED [Concomitant]
  5. HEPARIN [Concomitant]
  6. REOPRO [Concomitant]

REACTIONS (9)
  - MEDICATION ERROR [None]
  - INFUSION SITE EXTRAVASATION [None]
  - VASCULAR ACCESS COMPLICATION [None]
  - DRUG ADMINISTRATION ERROR [None]
  - DRUG INEFFECTIVE [None]
  - COAGULATION TIME ABNORMAL [None]
  - CORONARY NO-REFLOW PHENOMENON [None]
  - PAIN [None]
  - PROCEDURAL PAIN [None]
